FAERS Safety Report 9035152 (Version 1)
Quarter: 2013Q1

REPORT INFORMATION
  Report Type: Report from Study
  Country: US (occurrence: US)
  Receive Date: 20130129
  Receipt Date: 20130129
  Transmission Date: 20140127
  Serious: No
  Sender: FDA-Public Use
  Company Number: US-ABBOTT-12P-163-0893164-00

PATIENT
  Age: 19 Year
  Sex: Female

DRUGS (3)
  1. HUMIRA 40 MG/0.8 ML PEN [Suspect]
     Indication: CROHN^S DISEASE
     Dosage: (160MG LOADING DOSE)
     Dates: start: 20111214, end: 20111214
  2. HUMIRA 40 MG/0.8 ML PEN [Suspect]
     Dosage: (80MG LOADING DOSE)
     Dates: start: 20111228, end: 20111228
  3. HUMIRA 40 MG/0.8 ML PEN [Suspect]

REACTIONS (1)
  - Injection site bruising [Recovering/Resolving]
